FAERS Safety Report 16998744 (Version 1)
Quarter: 2019Q4

REPORT INFORMATION
  Report Type: Spontaneous
  Country: US (occurrence: US)
  Receive Date: 20191106
  Receipt Date: 20191106
  Transmission Date: 20200122
  Serious: No
  Sender: FDA-Public Use
  Company Number: US-MYLANLABS-2019M1101581

PATIENT
  Sex: Female

DRUGS (1)
  1. XULANE [Suspect]
     Active Substance: ETHINYL ESTRADIOL\NORELGESTROMIN
     Indication: HAEMORRHAGE
     Dosage: ONE PATCH A WEEK FOR 3 WEEKS, 4TH WEEK IS PATCH FREE
     Route: 062

REACTIONS (1)
  - Off label use [Recovered/Resolved]
